FAERS Safety Report 9664545 (Version 1)
Quarter: 2013Q4

REPORT INFORMATION
  Report Type: Spontaneous
  Country: DE (occurrence: DE)
  Receive Date: 20131101
  Receipt Date: 20131101
  Transmission Date: 20140711
  Serious: Yes (Other)
  Sender: FDA-Public Use
  Company Number: PHHY2013DE123740

PATIENT
  Sex: Female

DRUGS (4)
  1. GILENYA [Suspect]
     Indication: RELAPSING-REMITTING MULTIPLE SCLEROSIS
     Dosage: 0.5 MG, UNK
     Route: 048
     Dates: start: 201202
  2. GABAPENTIN [Concomitant]
     Indication: NEURALGIA
     Dosage: 150 MG, QD
     Route: 048
     Dates: start: 201112
  3. OMEPRAZOLE [Concomitant]
     Indication: GASTROOESOPHAGEAL REFLUX DISEASE
     Dosage: 40 MG, QD
     Dates: start: 201203
  4. BACLOFEN [Concomitant]
     Indication: MUSCLE SPASTICITY
     Dosage: 30 MG, QD
     Route: 048
     Dates: start: 201302

REACTIONS (4)
  - Cervical dysplasia [Unknown]
  - Papilloma viral infection [Unknown]
  - Vaginal discharge [Unknown]
  - Lactobacillus test positive [Unknown]
